FAERS Safety Report 6175167-8 (Version None)
Quarter: 2009Q2

REPORT INFORMATION
  Report Type: 
  Country: None (occurrence: None)
  Receive Date: 20090430
  Receipt Date: 20090115
  Transmission Date: 20091009
  Serious: No
  Sender: FDA-Public Use
  Company Number: US-ASTRAZENECA-2009UW01336

PATIENT
  Age: 2 Year
  Sex: Female

DRUGS (1)
  1. NEXIUM [Suspect]
     Dosage: 40 MG
     Route: 048
     Dates: start: 20090115, end: 20090115

REACTIONS (2)
  - ACCIDENTAL DRUG INTAKE BY CHILD [None]
  - DIARRHOEA [None]
